FAERS Safety Report 17554058 (Version 4)
Quarter: 2020Q2

REPORT INFORMATION
  Report Type: Report from Study
  Country: US (occurrence: US)
  Receive Date: 20200317
  Receipt Date: 20200423
  Transmission Date: 20200713
  Serious: No
  Sender: FDA-Public Use
  Company Number: NVSC2020US074751

PATIENT
  Age: 33 Year
  Sex: Male

DRUGS (2)
  1. MAYZENT [Suspect]
     Active Substance: SIPONIMOD
     Indication: MULTIPLE SCLEROSIS
     Dosage: UNK
     Route: 048
  2. MAYZENT [Suspect]
     Active Substance: SIPONIMOD
     Route: 048

REACTIONS (8)
  - Nausea [Unknown]
  - Headache [Recovered/Resolved]
  - Myalgia [Unknown]
  - Gastric disorder [Recovering/Resolving]
  - Hypoaesthesia [Unknown]
  - Arthralgia [Unknown]
  - Asthenia [Unknown]
  - Mobility decreased [Unknown]
